FAERS Safety Report 7786557-1 (Version None)
Quarter: 2011Q3

REPORT INFORMATION
  Report Type: 
  Country: None (occurrence: None)
  Receive Date: 20110929
  Receipt Date: 20110920
  Transmission Date: 20111222
  Serious: Yes (Other)
  Sender: FDA-Public Use
  Company Number: JP-GLAXOSMITHKLINE-B0749569A

PATIENT
  Age: 9 Decade
  Sex: Female

DRUGS (2)
  1. PAXIL [Suspect]
     Indication: DEPRESSION
     Route: 048
     Dates: start: 20110101, end: 20110101
  2. PAXIL [Suspect]
     Dosage: 40MG PER DAY
     Route: 048
     Dates: start: 20110101, end: 20110101

REACTIONS (4)
  - PYREXIA [None]
  - DYSKINESIA [None]
  - HEPATIC FUNCTION ABNORMAL [None]
  - SEROTONIN SYNDROME [None]
